FAERS Safety Report 5274615-5 (Version None)
Quarter: 2007Q1

REPORT INFORMATION
  Report Type: 
  Country: None (occurrence: None)
  Receive Date: 20070320
  Receipt Date: 20070312
  Transmission Date: 20070707
  Serious: Yes (Hospitalization, Other)
  Sender: FDA-Public Use
  Company Number: 2007311221

PATIENT
  Sex: Female

DRUGS (1)
  1. BENADRYL [Suspect]
     Indication: CROHN'S DISEASE
     Dosage: 2 BOTTLES EVERY DAY, ORAL
     Route: 048
     Dates: start: 20060101, end: 20070312

REACTIONS (5)
  - DIARRHOEA HAEMORRHAGIC [None]
  - SKIN LESION [None]
  - SKIN ULCER [None]
  - VOMITING [None]
  - WEIGHT DECREASED [None]
